FAERS Safety Report 7297750-9 (Version None)
Quarter: 2011Q1

REPORT INFORMATION
  Report Type: 
  Country: None (occurrence: None)
  Receive Date: 20110214
  Receipt Date: 20110214
  Transmission Date: 20110831
  Serious: No
  Sender: FDA-Public Use
  Company Number: None

PATIENT
  Sex: Male
  Weight: 121.564 kg

DRUGS (2)
  1. PRADAXA [Suspect]
     Indication: INTERNATIONAL NORMALISED RATIO ABNORMAL
  2. PRADAXA [Suspect]
     Indication: PROTHROMBIN TIME ABNORMAL

REACTIONS (1)
  - DYSPEPSIA [None]
